FAERS Safety Report 16001490 (Version 3)
Quarter: 2019Q2

REPORT INFORMATION
  Report Type: Spontaneous
  Country: US (occurrence: US)
  Receive Date: 20190225
  Receipt Date: 20190415
  Transmission Date: 20190711
  Serious: Yes (Death, Other)
  Sender: FDA-Public Use
  Company Number: US-ASTRAZENECA-2018SF25997

PATIENT
  Sex: Male

DRUGS (12)
  1. NEXIUM 24HR [Suspect]
     Active Substance: ESOMEPRAZOLE MAGNESIUM
     Indication: GASTROOESOPHAGEAL REFLUX DISEASE
     Route: 048
     Dates: start: 2004, end: 2009
  2. PRILOSEC OTC [Suspect]
     Active Substance: OMEPRAZOLE MAGNESIUM
     Route: 048
     Dates: start: 2004, end: 2009
  3. PEPCID [Concomitant]
     Active Substance: FAMOTIDINE
  4. ZANTAC [Concomitant]
     Active Substance: RANITIDINE HYDROCHLORIDE
     Dates: start: 2003, end: 2008
  5. NEXIUM [Suspect]
     Active Substance: ESOMEPRAZOLE MAGNESIUM
     Indication: GASTROOESOPHAGEAL REFLUX DISEASE
     Route: 048
     Dates: start: 2004, end: 2009
  6. PRILOSEC [Suspect]
     Active Substance: OMEPRAZOLE MAGNESIUM
     Route: 048
     Dates: start: 2004, end: 2009
  7. PREVACID 24 HR [Suspect]
     Active Substance: LANSOPRAZOLE
     Indication: GASTROOESOPHAGEAL REFLUX DISEASE
     Route: 065
     Dates: start: 2004, end: 2009
  8. NEXIUM 24HR [Suspect]
     Active Substance: ESOMEPRAZOLE MAGNESIUM
     Indication: GASTROOESOPHAGEAL REFLUX DISEASE
     Route: 048
     Dates: start: 2004, end: 2009
  9. PREVACID [Suspect]
     Active Substance: LANSOPRAZOLE
     Indication: GASTROOESOPHAGEAL REFLUX DISEASE
     Route: 065
     Dates: start: 2004, end: 2009
  10. TAGAMET HB [Concomitant]
     Active Substance: CIMETIDINE
  11. DEXILANT [Suspect]
     Active Substance: DEXLANSOPRAZOLE
     Route: 065
     Dates: start: 2004, end: 2009
  12. PROTONIX [Suspect]
     Active Substance: PANTOPRAZOLE SODIUM
     Route: 065
     Dates: start: 2004, end: 2009

REACTIONS (4)
  - Renal injury [Unknown]
  - End stage renal disease [Not Recovered/Not Resolved]
  - Death [Fatal]
  - Renal failure [Unknown]
